FAERS Safety Report 11888263 (Version 1)
Quarter: 2016Q1

REPORT INFORMATION
  Report Type: Spontaneous
  Country: US (occurrence: None)
  Receive Date: 20160104
  Receipt Date: 20160104
  Transmission Date: 20160526
  Serious: Yes (Other)
  Sender: FDA-Public Use
  Company Number: None

PATIENT
  Age: 75 Year
  Sex: Female

DRUGS (1)
  1. ETOPOSIDE 50 MG [Suspect]
     Active Substance: ETOPOSIDE
     Indication: SMALL CELL LUNG CANCER
     Route: 048
     Dates: start: 20151222, end: 20151231

REACTIONS (3)
  - Asthenia [None]
  - Bone pain [None]
  - Dysphagia [None]

NARRATIVE: CASE EVENT DATE: 20151231
